FAERS Safety Report 8912689 (Version 2)
Quarter: 2012Q4

REPORT INFORMATION
  Report Type: 
  Country: CN (occurrence: CN)
  Receive Date: 20121116
  Receipt Date: 20121121
  Transmission Date: 20130627
  Serious: Yes (Other)
  Sender: FDA-Public Use
  Company Number: CN-JNJFOC-20121106496

PATIENT
  Age: 1 Year
  Sex: Female
  Weight: 11.5 kg

DRUGS (2)
  1. IBUPROFEN [Suspect]
     Route: 048
  2. IBUPROFEN [Suspect]
     Indication: PYREXIA
     Dosage: 4 ml twice a day
     Route: 048
     Dates: start: 20121108, end: 20121108

REACTIONS (4)
  - Hypersensitivity [Recovered/Resolved]
  - Oedema peripheral [Recovered/Resolved]
  - Generalised oedema [Recovered/Resolved]
  - Lip oedema [Recovered/Resolved]
